FAERS Safety Report 6444221-5 (Version None)
Quarter: 2009Q4

REPORT INFORMATION
  Report Type: 
  Country: None (occurrence: None)
  Receive Date: 20091116
  Receipt Date: 20091116
  Transmission Date: 20100525
  Serious: Yes (Disabling)
  Sender: FDA-Public Use
  Company Number: None

PATIENT
  Sex: Male
  Weight: 91.173 kg

DRUGS (2)
  1. CIPROFLOXACIN [Suspect]
     Indication: BIOPSY PROSTATE
     Dosage: 500 MG 2X DAY, 10 DAYS 1000 MG PER DAY; 7 DAYS  500 MG PER DAY
  2. CIPROFLOXACIN [Suspect]
     Indication: BIOPSY PROSTATE
     Dosage: 500 MG 2X DAY, 10 DAYS 1000 MG PER DAY; 7 DAYS  500 MG PER DAY

REACTIONS (10)
  - ACTIVITIES OF DAILY LIVING IMPAIRED [None]
  - ARTHRALGIA [None]
  - DIARRHOEA [None]
  - HEADACHE [None]
  - INCORRECT DOSE ADMINISTERED [None]
  - MUSCULAR WEAKNESS [None]
  - MYALGIA [None]
  - OEDEMA PERIPHERAL [None]
  - SENSATION OF HEAVINESS [None]
  - TENDON PAIN [None]
